FAERS Safety Report 16984952 (Version 11)
Quarter: 2020Q3

REPORT INFORMATION
  Report Type: Spontaneous
  Country: US (occurrence: US)
  Receive Date: 20191101
  Receipt Date: 20200922
  Transmission Date: 20201102
  Serious: Yes (Hospitalization, Other)
  Sender: FDA-Public Use
  Company Number: US-CATALYST PHARMACEUTICALS, INC-2019CAT00536

PATIENT
  Age: 89 Year
  Sex: Female
  Weight: 90.7 kg

DRUGS (42)
  1. XARELTO [Concomitant]
     Active Substance: RIVAROXABAN
     Dosage: 15 MG, 1X/DAY
     Route: 048
  2. LASIX [Concomitant]
     Active Substance: FUROSEMIDE
     Dosage: 20 MG, 1X/DAY
  3. FIRDAPSE [Suspect]
     Active Substance: AMIFAMPRIDINE PHOSPHATE
     Indication: MYASTHENIC SYNDROME
     Dosage: 20 MG, 3X/DAY
     Route: 048
     Dates: start: 201905, end: 2019
  4. MAG OXIDE [Concomitant]
     Active Substance: MAGNESIUM OXIDE
     Dosage: 400 MG, 2X/WEEK (MON AND THU)
     Route: 048
  5. MULTIVITAMIN [Concomitant]
     Active Substance: VITAMINS
  6. TYLENOL [Concomitant]
     Active Substance: ACETAMINOPHEN
     Dosage: 650 MG, UP TO 4X/DAY (EVERY 6 HOURS AS NEEDED)
     Route: 048
  7. VOLATREN [Concomitant]
     Dosage: 2 G, 3X/DAY
     Route: 061
  8. PEPCID [Concomitant]
     Active Substance: FAMOTIDINE
  9. AMIODARONE [Concomitant]
     Active Substance: AMIODARONE
     Dosage: 200 MG, 1X/DAY
     Route: 048
  10. CITRA CAL PLUS D 3 [Concomitant]
  11. OMEGA 3 [Concomitant]
     Active Substance: OMEGA-3 FATTY ACIDS
  12. OMEPRAZOLE. [Concomitant]
     Active Substance: OMEPRAZOLE
  13. RANITIDINE. [Concomitant]
     Active Substance: RANITIDINE
  14. LIDOCAINE?PRILOCAINE [Concomitant]
     Active Substance: LIDOCAINE\PRILOCAINE
  15. FIRDAPSE [Suspect]
     Active Substance: AMIFAMPRIDINE PHOSPHATE
     Dosage: 5 MG, 1X/DAY
     Route: 048
     Dates: start: 2019
  16. TAPENTADOL [Suspect]
     Active Substance: TAPENTADOL
  17. FISH OIL [Concomitant]
     Active Substance: FISH OIL
  18. PROLIA [Concomitant]
     Active Substance: DENOSUMAB
  19. TAMSULOSIN [Concomitant]
     Active Substance: TAMSULOSIN
     Dosage: 1 CAPSULES, 1X/DAY
  20. DIGOXIN. [Concomitant]
     Active Substance: DIGOXIN
     Dosage: 125 ?G, 3X/WEEK (MON, WED, FRI)
     Route: 048
  21. MIDODRINE [Concomitant]
     Active Substance: MIDODRINE
     Dosage: UNK, 3X/DAY
  22. NIACIN. [Concomitant]
     Active Substance: NIACIN
  23. DENOSUMAB [Concomitant]
     Active Substance: DENOSUMAB
     Dosage: UNK, 1X/MONTH
     Route: 058
  24. CLARITIN [Concomitant]
     Active Substance: LORATADINE
  25. METOPROLOL TARTRATE. [Concomitant]
     Active Substance: METOPROLOL TARTRATE
     Dosage: 12.5 MG, 2X/DAY
     Route: 048
  26. MIDODRINE [Concomitant]
     Active Substance: MIDODRINE
     Dosage: 5 MG, 2X/DAY PC
     Route: 048
  27. PREDNISONE. [Concomitant]
     Active Substance: PREDNISONE
     Dosage: 20 MG, 1X/DAY
     Route: 048
  28. PRESERVISON AREDS 2 [Concomitant]
  29. VITAMIN D3 [Concomitant]
     Active Substance: CHOLECALCIFEROL
     Dosage: 5000 U, 1X/DAY
  30. ^PRESSURE VISION^ [Concomitant]
  31. BACTRIM [Suspect]
     Active Substance: SULFAMETHOXAZOLE\TRIMETHOPRIM
     Dosage: UNK
     Dates: start: 2019, end: 20191203
  32. COLACE [Concomitant]
     Active Substance: DOCUSATE SODIUM
  33. FUROSEMIDE. [Concomitant]
     Active Substance: FUROSEMIDE
     Dosage: 20 MG
     Route: 048
  34. METOPROLOL TARTRATE. [Concomitant]
     Active Substance: METOPROLOL TARTRATE
     Dosage: 50 MG, 1X/DAY
  35. VITAMIN D3 [Concomitant]
     Active Substance: CHOLECALCIFEROL
     Dosage: 2000 IU, 1X/DAY
  36. MACULAR PRO EYE VITAMIN [Concomitant]
  37. COENZYME Q10 [Concomitant]
     Active Substance: DIETARY SUPPLEMENT\UBIDECARENONE
     Dosage: 100 MG, 1X/DAY
     Route: 048
  38. LATANOPROST. [Concomitant]
     Active Substance: LATANOPROST
     Dosage: 1 DROP, 1X/DAY (RIGHT EYE, EVENING)
     Route: 047
  39. FIRDAPSE [Suspect]
     Active Substance: AMIFAMPRIDINE PHOSPHATE
     Dosage: TITRATING
     Route: 048
  40. FIRDAPSE [Suspect]
     Active Substance: AMIFAMPRIDINE PHOSPHATE
     Dosage: 20 MG, 3X/DAY
     Route: 048
  41. DIGOXIN. [Concomitant]
     Active Substance: DIGOXIN
     Dosage: 1 TABLET, 5 DAYS A WEEK
  42. VITAMIN B12 [Concomitant]
     Active Substance: CYANOCOBALAMIN
     Dosage: 1000 ?G, 1X/MONTH

REACTIONS (20)
  - Toxicity to various agents [Recovered/Resolved]
  - Drug interaction [Recovered/Resolved]
  - Nephropathy toxic [Recovering/Resolving]
  - Tremor [Recovering/Resolving]
  - Atrial fibrillation [Recovering/Resolving]
  - Decubitus ulcer [Recovering/Resolving]
  - Nephrolithiasis [Recovered/Resolved]
  - Urinary tract infection [Recovered/Resolved]
  - Muscular weakness [Not Recovered/Not Resolved]
  - Proteus infection [Recovered/Resolved]
  - Septic shock [Recovered/Resolved]
  - Fall [Unknown]
  - COVID-19 [Unknown]
  - Oedema peripheral [Not Recovered/Not Resolved]
  - Acute kidney injury [Recovered/Resolved]
  - Pain in extremity [Unknown]
  - Klebsiella sepsis [Recovered/Resolved]
  - Performance status decreased [Not Recovered/Not Resolved]
  - Asthenia [Not Recovered/Not Resolved]
  - Contusion [Recovering/Resolving]

NARRATIVE: CASE EVENT DATE: 2019
